FAERS Safety Report 24864281 (Version 1)
Quarter: 2025Q1

REPORT INFORMATION
  Report Type: Spontaneous
  Country: CN (occurrence: CN)
  Receive Date: 20250120
  Receipt Date: 20250120
  Transmission Date: 20250408
  Serious: Yes (Life-Threatening, Hospitalization, Other)
  Sender: JIANGSU HANSOH PHARMACEUTICAL
  Company Number: CN-Jiangsu Hansoh Pharmaceutical Co., Ltd-2169380

PATIENT
  Age: 62 Year
  Sex: Female

DRUGS (2)
  1. GEMCITABINE HYDROCHLORIDE [Suspect]
     Active Substance: GEMCITABINE HYDROCHLORIDE
     Indication: Ureteral neoplasm
     Dates: start: 20241129, end: 20241129
  2. CISPLATIN [Suspect]
     Active Substance: CISPLATIN
     Dates: start: 20241129, end: 20241129

REACTIONS (2)
  - Myelosuppression [Recovering/Resolving]
  - Off label use [Unknown]

NARRATIVE: CASE EVENT DATE: 20241212
